FAERS Safety Report 22121642 (Version 1)
Quarter: 2023Q1

REPORT INFORMATION
  Report Type: Other
  Country: None (occurrence: LB)
  Receive Date: 20230321
  Receipt Date: 20230321
  Transmission Date: 20230417
  Serious: Yes (Death)
  Sender: FDA-Public Use
  Company Number: LB-B.Braun Medical Inc.-2139330

PATIENT
  Age: 42 Year
  Sex: Female

DRUGS (2)
  1. ACETAMINOPHEN [Suspect]
     Active Substance: ACETAMINOPHEN
     Indication: Suicide attempt
  2. ALPHA LIPOIC ACID [Suspect]
     Active Substance: .ALPHA.-LIPOIC ACID

REACTIONS (25)
  - Intentional overdose [Fatal]
  - Vomiting [Fatal]
  - Thrombocytopenia [Fatal]
  - Nephropathy toxic [Fatal]
  - Hypotension [Fatal]
  - Hypertransaminasaemia [Fatal]
  - Coagulopathy [Fatal]
  - Somnolence [Fatal]
  - Agitation [Fatal]
  - Tachypnoea [Fatal]
  - Respiration abnormal [Fatal]
  - Seizure [Fatal]
  - Nystagmus [Fatal]
  - Mydriasis [Fatal]
  - Dysarthria [Fatal]
  - Multiple organ dysfunction syndrome [Fatal]
  - Supraventricular tachycardia [Fatal]
  - Hyperkalaemia [Fatal]
  - Rhabdomyolysis [Fatal]
  - Cardiac contractility decreased [Fatal]
  - Metabolic acidosis [Fatal]
  - Lactic acidosis [Fatal]
  - Cardiac arrest [Fatal]
  - Cardiac failure [Fatal]
  - Cardiogenic shock [Fatal]
